FAERS Safety Report 4927916-1 (Version None)
Quarter: 2006Q1

REPORT INFORMATION
  Report Type: 
  Country: None (occurrence: None)
  Receive Date: 20060222
  Receipt Date: 20060209
  Transmission Date: 20060701
  Serious: Yes (Death)
  Sender: FDA-Public Use
  Company Number: MEDI-0004075

PATIENT
  Age: 4 Month
  Sex: Female

DRUGS (2)
  1. SYNAGIS [Suspect]
     Indication: ANTIVIRAL PROPHYLAXIS
     Dosage: 71 MG, 1 IN 30 D, INTRAMUSCULAR
     Route: 030
     Dates: start: 20051222, end: 20060123
  2. SYNAGIS [Suspect]
     Dosage: 76 MG, 1 IN 30 D, INTRAMUSCULAR
     Route: 030
     Dates: start: 20051222

REACTIONS (3)
  - ASPIRATION [None]
  - CARDIAC ARREST [None]
  - LOSS OF CONSCIOUSNESS [None]
